FAERS Safety Report 9267096 (Version 1)
Quarter: 2013Q2

REPORT INFORMATION
  Report Type: Spontaneous
  Country: US (occurrence: US)
  Receive Date: 20130502
  Receipt Date: 20130502
  Transmission Date: 20140414
  Serious: No
  Sender: FDA-Public Use
  Company Number: US-PFIZER INC-2013133843

PATIENT
  Sex: Female

DRUGS (1)
  1. ZOLOFT [Suspect]
     Dosage: 25 MG, UNK
     Route: 048
     Dates: start: 20130426

REACTIONS (5)
  - Anxiety [Unknown]
  - Panic attack [Unknown]
  - Nausea [Unknown]
  - Paraesthesia [Unknown]
  - Headache [Unknown]
